FAERS Safety Report 7422174-0 (Version None)
Quarter: 2011Q2

REPORT INFORMATION
  Report Type: 
  Country: None (occurrence: None)
  Receive Date: 20110418
  Receipt Date: 20110321
  Transmission Date: 20111010
  Serious: Yes (Hospitalization, Other)
  Sender: FDA-Public Use
  Company Number: US-BAYER-2010-002279

PATIENT
  Sex: Female
  Weight: 56.236 kg

DRUGS (2)
  1. YASMIN [Suspect]
     Dosage: UNK UNK, QD
     Route: 048
     Dates: start: 20040101, end: 20070101
  2. YAZ [Suspect]
     Dosage: UNK UNK, QD
     Route: 048
     Dates: start: 20040101, end: 20070101

REACTIONS (10)
  - LIPOMA [None]
  - MASS [None]
  - HYSTERECTOMY [None]
  - CHOLECYSTECTOMY [None]
  - PELVIC PAIN [None]
  - VULVAL DISORDER [None]
  - BENIGN NEOPLASM [None]
  - ABORTION SPONTANEOUS [None]
  - ENDOMETRIOSIS [None]
  - THROMBOSIS [None]
